FAERS Safety Report 4849378-5 (Version None)
Quarter: 2005Q4

REPORT INFORMATION
  Report Type: 
  Country: None (occurrence: None)
  Receive Date: 20051207
  Receipt Date: 20051117
  Transmission Date: 20060501
  Serious: Yes (Hospitalization)
  Sender: FDA-Public Use
  Company Number: WAES 0511USA00855

PATIENT
  Age: 68 Year
  Sex: Female

DRUGS (8)
  1. ZOCOR [Suspect]
     Dosage: PO
     Route: 048
  2. ALINAMIN F [Concomitant]
  3. GLAKAY [Concomitant]
  4. JUVELA [Concomitant]
  5. METHYLCOBAZ [Concomitant]
  6. MUCOSTA [Concomitant]
  7. ROCALTROL [Concomitant]
  8. VITAMEDIN [Concomitant]

REACTIONS (1)
  - HERPES ZOSTER [None]
